FAERS Safety Report 6599472-6 (Version None)
Quarter: 2010Q1

REPORT INFORMATION
  Report Type: 
  Country: None (occurrence: None)
  Receive Date: 20100224
  Receipt Date: 20100211
  Transmission Date: 20100710
  Serious: Yes (Other)
  Sender: FDA-Public Use
  Company Number: US-BAYER-201012011BCC

PATIENT
  Sex: Female

DRUGS (1)
  1. ALEVE (CAPLET) [Suspect]
     Indication: DRUG USE FOR UNKNOWN INDICATION
     Dosage: CONSUMER REPORTED TAKING 10 ALEVE, BUT IT IS UNKNOWN IF IT WAS THE TOTAL DAILY DOSE
     Route: 048

REACTIONS (1)
  - GASTRIC ULCER [None]
